FAERS Safety Report 19397443 (Version 3)
Quarter: 2021Q2

REPORT INFORMATION
  Report Type: Report from Study
  Country: None (occurrence: US)
  Receive Date: 20210610
  Receipt Date: 20210623
  Transmission Date: 20210717
  Serious: Yes (Hospitalization)
  Sender: FDA-Public Use
  Company Number: US-ABBVIE-21K-163-3939297-00

PATIENT
  Age: 105 Year
  Sex: Female
  Weight: 54.48 kg

DRUGS (1)
  1. SYNTHROID [Suspect]
     Active Substance: LEVOTHYROXINE SODIUM
     Indication: HYPOTHYROIDISM
     Dosage: PROBABLY 50 YEARS AGO
     Route: 048

REACTIONS (5)
  - Hypothyroidism [Recovered/Resolved]
  - Cerebrovascular accident [Recovering/Resolving]
  - Platelet count increased [Not Recovered/Not Resolved]
  - Weight decreased [Recovering/Resolving]
  - Hypophagia [Recovering/Resolving]

NARRATIVE: CASE EVENT DATE: 2020
